FAERS Safety Report 7107442-4 (Version None)
Quarter: 2010Q4

REPORT INFORMATION
  Report Type: 
  Country: None (occurrence: None)
  Receive Date: 20101018
  Receipt Date: 20090901
  Transmission Date: 20110411
  Serious: Yes (Other)
  Sender: FDA-Public Use
  Company Number: US-WYE-H07818909

PATIENT
  Age: 68 Year
  Sex: Female

DRUGS (2)
  1. PREMARIN [Suspect]
     Indication: PRODUCT USED FOR UNKNOWN INDICATION
  2. DIETHYLSTILBESTROL [Suspect]
     Indication: PRODUCT USED FOR UNKNOWN INDICATION

REACTIONS (1)
  - BREAST CANCER [None]
